FAERS Safety Report 6640862-0 (Version None)
Quarter: 2010Q1

REPORT INFORMATION
  Report Type: 
  Country: None (occurrence: None)
  Receive Date: 20100318
  Receipt Date: 20100304
  Transmission Date: 20100710
  Serious: Yes (Death)
  Sender: FDA-Public Use
  Company Number: GB-MYLANLABS-2009S1018850

PATIENT
  Age: 30 Year
  Sex: Male

DRUGS (6)
  1. SERTRALINE HCL [Suspect]
     Indication: DEPRESSION
     Route: 048
     Dates: start: 20081101, end: 20090301
  2. SERTRALINE HCL [Suspect]
     Indication: PERSONALITY DISORDER
     Route: 048
     Dates: start: 20081101, end: 20090301
  3. QUETIAPINE [Suspect]
     Indication: DEPRESSION
     Route: 048
     Dates: start: 20081101, end: 20090301
  4. QUETIAPINE [Suspect]
     Indication: PERSONALITY DISORDER
     Route: 048
     Dates: start: 20081101, end: 20090301
  5. ETHANOL [Suspect]
     Indication: DRUG USE FOR UNKNOWN INDICATION
  6. MONTELUKAST SODIUM [Concomitant]
     Indication: ASTHMA
     Route: 048
     Dates: start: 20081201, end: 20090330

REACTIONS (2)
  - ALCOHOL INTERACTION [None]
  - ALCOHOL POISONING [None]
